FAERS Safety Report 13167356 (Version 1)
Quarter: 2017Q1

REPORT INFORMATION
  Report Type: Spontaneous
  Country: GB (occurrence: IE)
  Receive Date: 20170131
  Receipt Date: 20170131
  Transmission Date: 20170428
  Serious: Yes (Hospitalization)
  Sender: FDA-Public Use
  Company Number: GB-GLAXOSMITHKLINE-IE2017GSK011887

PATIENT
  Age: 74 Year
  Sex: Male
  Weight: 105 kg

DRUGS (4)
  1. INCRUSE ELLIPTA [Suspect]
     Active Substance: UMECLIDINIUM BROMIDE
     Indication: CHRONIC OBSTRUCTIVE PULMONARY DISEASE
     Dosage: 1 UNK, QD
     Route: 055
     Dates: start: 20161109, end: 20170113
  2. COMBIVENT [Concomitant]
     Active Substance: ALBUTEROL SULFATE\IPRATROPIUM BROMIDE
     Indication: CHRONIC OBSTRUCTIVE PULMONARY DISEASE
     Dosage: UNK
     Dates: start: 20170109, end: 20170118
  3. PREDNISOLONE. [Concomitant]
     Active Substance: PREDNISOLONE
     Indication: CHRONIC OBSTRUCTIVE PULMONARY DISEASE
     Dosage: 30 MG, QD
     Dates: start: 20170109, end: 20170114
  4. SALAMOL [Concomitant]
     Active Substance: ALBUTEROL
     Indication: INHALATION THERAPY
     Dosage: 100 UNK, UNK
     Dates: start: 20161108, end: 20170118

REACTIONS (7)
  - Eye swelling [Recovering/Resolving]
  - Feeling abnormal [Not Recovered/Not Resolved]
  - Halo vision [Recovering/Resolving]
  - Chronic obstructive pulmonary disease [Not Recovered/Not Resolved]
  - Nausea [Not Recovered/Not Resolved]
  - Swelling face [Recovering/Resolving]
  - Drug intolerance [Not Recovered/Not Resolved]

NARRATIVE: CASE EVENT DATE: 20170109
